FAERS Safety Report 4813424-5 (Version None)
Quarter: 2005Q4

REPORT INFORMATION
  Report Type: 
  Country: None (occurrence: None)
  Receive Date: 20051026
  Receipt Date: 20051006
  Transmission Date: 20060501
  Serious: Yes (Hospitalization, Other)
  Sender: FDA-Public Use
  Company Number: USA0510110149

PATIENT
  Age: 3 Year
  Sex: Male

DRUGS (3)
  1. HUMATROPE [Suspect]
     Indication: GROWTH HORMONE DEFICIENCY
     Dates: start: 20020101
  2. LEVOXYL [Concomitant]
  3. TRILEPTAL [Concomitant]

REACTIONS (2)
  - AUTISM [None]
  - PHARMACEUTICAL PRODUCT COMPLAINT [None]
